FAERS Safety Report 5399453-4 (Version None)
Quarter: 2007Q3

REPORT INFORMATION
  Report Type: 
  Country: None (occurrence: None)
  Receive Date: 20070727
  Receipt Date: 20070716
  Transmission Date: 20080115
  Serious: Yes (Hospitalization)
  Sender: FDA-Public Use
  Company Number: BR-PFIZER INC-2007060507

PATIENT
  Sex: Female
  Weight: 62 kg

DRUGS (5)
  1. FELDENE [Suspect]
     Indication: TENDON DISORDER
     Route: 060
  2. PURAN T4 [Concomitant]
     Route: 048
  3. FOLIC ACID [Concomitant]
  4. OMEPRAZOLE [Concomitant]
  5. SIMVASTATIN [Concomitant]

REACTIONS (2)
  - ARTHRALGIA [None]
  - PNEUMONIA [None]
